FAERS Safety Report 6371153-3 (Version None)
Quarter: 2009Q3

REPORT INFORMATION
  Report Type: 
  Country: None (occurrence: None)
  Receive Date: 20090918
  Receipt Date: 20090909
  Transmission Date: 20100115
  Serious: Yes (Death, Hospitalization)
  Sender: FDA-Public Use
  Company Number: A-JP2008-21596

PATIENT
  Age: 78 Year
  Sex: Male
  Weight: 56 kg

DRUGS (21)
  1. TRACLEER [Suspect]
     Indication: PULMONARY ARTERIAL HYPERTENSION
     Dosage: 62.5 MG, BID, ORAL; 62.5 MG, OD, ORAL
     Route: 048
     Dates: start: 20070625, end: 20070726
  2. TRACLEER [Suspect]
     Indication: PULMONARY ARTERIAL HYPERTENSION
     Dosage: 62.5 MG, BID, ORAL; 62.5 MG, OD, ORAL
     Route: 048
     Dates: start: 20070727, end: 20081208
  3. ISONIAZID [Concomitant]
  4. PYRIDOXAL PHOSPHATE (PYRIDOXAL PHOSPHATE) [Concomitant]
  5. AMBROXOL (AMBROXOL HYDROCHLORIDE) [Concomitant]
  6. OMEPRAZOLE [Concomitant]
  7. AZATHIOPRINE [Concomitant]
  8. SULFAMETHOXAZOLE AND TRIMETHOPRIM (TRIMETHOPRIM, SULFAMETHOAZOLE) [Concomitant]
  9. CLARITHROMYCIN [Concomitant]
  10. TULOBUTEROL (TULOBUTEROL) [Concomitant]
  11. PREDNISOLONE [Concomitant]
  12. ALENDRONATE SODIUM [Concomitant]
  13. BAKUMONDOUTO (HERBAL EXTRACT NOS) [Concomitant]
  14. MONTELUKAST SODIUM [Concomitant]
  15. MAGNESIUM OXIDE (MAGNESIUM OXIDE) [Concomitant]
  16. NAFTOPIDIL (NAFTOPIDIL) [Concomitant]
  17. SOLIFENACIN SUCCINATE (SOLIFENACIN SUCCINATE) [Concomitant]
  18. CODEINE (CODEINE PHOSPHATE HEMIHYDRATE) [Concomitant]
  19. DEXTROMETHORPHAN HYDROBROMIDE (DEXTROMETHORPHAN HYDROBROMIDE) [Concomitant]
  20. MORPHINE [Concomitant]
  21. OXYGEN (OXYGEN) [Concomitant]

REACTIONS (11)
  - BULLOUS LUNG DISEASE [None]
  - DIFFUSE PANBRONCHIOLITIS [None]
  - INTERSTITIAL LUNG DISEASE [None]
  - MENTAL STATUS CHANGES [None]
  - NOCARDIOSIS [None]
  - PANCYTOPENIA [None]
  - PNEUMONIA BACTERIAL [None]
  - PNEUMOTHORAX [None]
  - PULMONARY ARTERY WALL HYPERTROPHY [None]
  - RESPIRATORY DEPRESSION [None]
  - RESPIRATORY FAILURE [None]
